FAERS Safety Report 15287918 (Version 1)
Quarter: 2018Q4

REPORT INFORMATION
  Report Type: Spontaneous
  Country: FR (occurrence: FR)
  Receive Date: 20180817
  Receipt Date: 20180817
  Transmission Date: 20190204
  Serious: Yes (Hospitalization)
  Sender: FDA-Public Use
  Company Number: FR-TEVA-2018-FR-942196

PATIENT
  Age: 42 Year
  Sex: Male
  Weight: 67 kg

DRUGS (11)
  1. NEULASTA [Suspect]
     Active Substance: PEGFILGRASTIM
     Indication: COLONY STIMULATING FACTOR THERAPY
     Dosage: 1 DOSAGE FORMS DAILY;
     Route: 058
     Dates: start: 20171231, end: 20171231
  2. LANSOPRAZOLE. [Concomitant]
     Active Substance: LANSOPRAZOLE
     Dosage: 30 MILLIGRAM DAILY;
     Route: 048
  3. ONDANSETRON ACCORD [Concomitant]
     Active Substance: ONDANSETRON
     Route: 042
  4. CARBOPLATINE ACCORD [Suspect]
     Active Substance: CARBOPLATIN
     Indication: ADRENAL GLAND CANCER METASTATIC
     Route: 042
     Dates: start: 20170627
  5. LEVOTHYROX 75 MICROGRAMMES, COMPRIM? S?CABLE [Concomitant]
     Active Substance: LEVOTHYROXINE SODIUM
     Dosage: 75 MICROGRAM DAILY;
     Route: 048
  6. ETOPOSIDE TEVA [Suspect]
     Active Substance: ETOPOSIDE
     Indication: ADRENAL GLAND CANCER METASTATIC
     Route: 042
     Dates: start: 20170627
  7. METHYLPREDNISOLONE MYLAN [Suspect]
     Active Substance: METHYLPREDNISOLONE
     Indication: ADRENAL GLAND CANCER METASTATIC
     Dosage: 180  DAILY;
     Route: 042
     Dates: start: 20170627
  8. EMEND [Concomitant]
     Active Substance: APREPITANT
     Dosage: 125 PUIS 80 MG
     Route: 048
  9. LOVENOX [Concomitant]
     Active Substance: ENOXAPARIN SODIUM
     Dosage: 12000 IU (INTERNATIONAL UNIT) DAILY;
     Route: 058
  10. HYDROCORTISONE. [Concomitant]
     Active Substance: HYDROCORTISONE
     Dosage: 100 MILLIGRAM DAILY;
     Route: 048
  11. LYSODREN [Concomitant]
     Active Substance: MITOTANE
     Dosage: 6 DOSAGE FORMS DAILY;
     Route: 048

REACTIONS (3)
  - Hot flush [Recovered/Resolved]
  - Hyperthermia [Recovered/Resolved]
  - Hyperleukocytosis [Recovered/Resolved]

NARRATIVE: CASE EVENT DATE: 20180101
